FAERS Safety Report 4638222-7 (Version None)
Quarter: 2005Q2

REPORT INFORMATION
  Report Type: 
  Country: None (occurrence: None)
  Receive Date: 20050415
  Receipt Date: 20050324
  Transmission Date: 20051028
  Serious: Yes (Life-Threatening, Hospitalization)
  Sender: FDA-Public Use
  Company Number: 209248

PATIENT
  Age: 68 Year
  Sex: Male
  Weight: 74.8 kg

DRUGS (4)
  1. RITUXAN [Suspect]
     Indication: NON-HODGKIN'S LYMPHOMA
     Dosage: 375 MG/M2, 1/MONTH, INTRAVENOUS
     Route: 042
     Dates: start: 20011201, end: 20040802
  2. LIPITOR [Concomitant]
  3. LEXAPRO [Concomitant]
  4. ADVAIR (FLUTICASONE PROPIONATE, SALMETEROL XINAFOATE) [Concomitant]

REACTIONS (5)
  - HYPOTENSION [None]
  - NEUTROPENIA [None]
  - PYREXIA [None]
  - TREMOR [None]
  - WHITE BLOOD CELL COUNT DECREASED [None]
